FAERS Safety Report 20177561 (Version 2)
Quarter: 2022Q1

REPORT INFORMATION
  Report Type: Spontaneous
  Country: JP (occurrence: JP)
  Receive Date: 20211213
  Receipt Date: 20220114
  Transmission Date: 20220423
  Serious: Yes (Hospitalization, Other)
  Sender: FDA-Public Use
  Company Number: JP-JAZZ-2021-JP-021982

PATIENT
  Age: 7 Year
  Sex: Male
  Weight: 20.6 kg

DRUGS (15)
  1. DEFITELIO [Suspect]
     Active Substance: DEFIBROTIDE SODIUM
     Indication: Venoocclusive liver disease
     Dosage: 25 MILLIGRAM/KILOGRAM, QD
     Route: 042
     Dates: start: 20210114, end: 20210304
  2. DEFITELIO [Suspect]
     Active Substance: DEFIBROTIDE SODIUM
     Dosage: 25 MILLIGRAM/KILOGRAM, QD
     Route: 042
     Dates: start: 20210325, end: 20210329
  3. ANTITHROMBIN GAMMA [Concomitant]
     Dosage: UNK
     Dates: start: 20210115, end: 20210115
  4. ANTITHROMBIN GAMMA [Concomitant]
     Dosage: UNK
     Dates: start: 20210122, end: 20210123
  5. ANTITHROMBIN GAMMA [Concomitant]
     Dosage: UNK
     Dates: start: 20210125, end: 20210126
  6. ANTITHROMBIN GAMMA [Concomitant]
     Dosage: UNK
     Dates: start: 20210128, end: 20210128
  7. ANTITHROMBIN GAMMA [Concomitant]
     Dosage: UNK
     Dates: start: 20210130, end: 20210130
  8. ANTITHROMBIN GAMMA [Concomitant]
     Dosage: UNK
     Dates: start: 20210201, end: 20210201
  9. ANTITHROMBIN GAMMA [Concomitant]
     Dosage: UNK
     Dates: start: 20210205, end: 20210210
  10. ANTITHROMBIN GAMMA [Concomitant]
     Dosage: UNK
     Dates: start: 20210215, end: 20210215
  11. ANTITHROMBIN GAMMA [Concomitant]
     Dosage: UNK
     Dates: start: 20210217, end: 20210217
  12. ANTITHROMBIN GAMMA [Concomitant]
     Dosage: UNK
     Dates: start: 20210222, end: 20210222
  13. ANTITHROMBIN GAMMA [Concomitant]
     Dosage: UNK
     Dates: start: 20210302, end: 20210302
  14. ANTITHROMBIN GAMMA [Concomitant]
     Dosage: UNK
     Dates: start: 20210326, end: 20210326
  15. ANTITHROMBIN GAMMA [Concomitant]
     Dosage: UNK
     Dates: start: 20210328, end: 20210328

REACTIONS (4)
  - Graft versus host disease [Unknown]
  - Upper gastrointestinal haemorrhage [Recovering/Resolving]
  - Lower gastrointestinal haemorrhage [Recovering/Resolving]
  - Platelet count decreased [Unknown]

NARRATIVE: CASE EVENT DATE: 20210101
